FAERS Safety Report 17988064 (Version 1)
Quarter: 2020Q3

REPORT INFORMATION
  Report Type: Spontaneous
  Country: US (occurrence: US)
  Receive Date: 20200706
  Receipt Date: 20200706
  Transmission Date: 20201103
  Serious: No
  Sender: FDA-Public Use
  Company Number: None

PATIENT
  Age: 79 Year
  Sex: Female

DRUGS (1)
  1. TOBRAMYCIN NEB 300MG/5ML [Suspect]
     Active Substance: TOBRAMYCIN
     Dosage: ?          OTHER DOSE:NOT AVAILABLE;OTHER FREQUENCY:OTHER;?
     Route: 055
     Dates: start: 201911

REACTIONS (2)
  - Urinary tract infection [None]
  - Incorrect dose administered [None]

NARRATIVE: CASE EVENT DATE: 20200210
